FAERS Safety Report 21185607 (Version 1)
Quarter: 2022Q3

REPORT INFORMATION
  Report Type: Spontaneous
  Country: US (occurrence: None)
  Receive Date: 20220808
  Receipt Date: 20220808
  Transmission Date: 20221026
  Serious: Yes (Hospitalization)
  Sender: FDA-Public Use
  Company Number: None

PATIENT
  Age: 39 Year
  Sex: Female
  Weight: 49.5 kg

DRUGS (5)
  1. KEYTRUDA [Suspect]
     Active Substance: PEMBROLIZUMAB
     Indication: Malignant melanoma
     Dosage: OTHER QUANTITY : 1 INJECTION(S);?OTHER FREQUENCY : EVERY 3 WEEKS;?
     Route: 042
  2. PROGESTERONE [Concomitant]
  3. NALTREXONE [Concomitant]
     Active Substance: NALTREXONE
  4. VITAMINS [Concomitant]
     Active Substance: VITAMINS
  5. LOW DOSE ASPIRIN [Concomitant]
     Active Substance: ASPIRIN

REACTIONS (10)
  - Abortion spontaneous [None]
  - Pruritus [None]
  - Autoimmune disorder [None]
  - Arthralgia [None]
  - Paranasal sinus inflammation [None]
  - Gastrointestinal disorder [None]
  - Cardiac disorder [None]
  - Palpitations [None]
  - Angina pectoris [None]
  - Palpitations [None]
